FAERS Safety Report 24662178 (Version 1)
Quarter: 2024Q4

REPORT INFORMATION
  Report Type: Spontaneous
  Country: US (occurrence: US)
  Receive Date: 20241125
  Receipt Date: 20241125
  Transmission Date: 20250115
  Serious: No
  Sender: SUNOVION
  Company Number: US-MYOVANT SCIENCES GMBH-2024MYSCI0400640

PATIENT

DRUGS (1)
  1. ORGOVYX [Suspect]
     Active Substance: RELUGOLIX
     Indication: Prostate cancer
     Dosage: 120 MILLIGRAM, QD
     Route: 048

REACTIONS (4)
  - Illness [Unknown]
  - Dysphagia [Unknown]
  - Product dose omission issue [Unknown]
  - Therapy interrupted [Unknown]
